FAERS Safety Report 10908555 (Version 4)
Quarter: 2015Q2

REPORT INFORMATION
  Report Type: Spontaneous
  Country: AR (occurrence: AR)
  Receive Date: 20150312
  Receipt Date: 20150508
  Transmission Date: 20150821
  Serious: Yes (Death, Hospitalization, Other)
  Sender: FDA-Public Use
  Company Number: AR-ALEXION PHARMACEUTICALS INC.-A201500862

PATIENT

DRUGS (1)
  1. SOLIRIS [Suspect]
     Active Substance: ECULIZUMAB
     Indication: PAROXYSMAL NOCTURNAL HAEMOGLOBINURIA
     Dosage: 900 MG, Q2W
     Route: 042
     Dates: start: 20140526, end: 201410

REACTIONS (7)
  - Lung infiltration [Unknown]
  - Pyrexia [Unknown]
  - Seizure [Fatal]
  - Chronic kidney disease [Fatal]
  - Electrolyte imbalance [Unknown]
  - Metabolic disorder [Fatal]
  - Neurological decompensation [Unknown]
